FAERS Safety Report 6104441-6 (Version None)
Quarter: 2009Q1

REPORT INFORMATION
  Report Type: 
  Country: None (occurrence: None)
  Receive Date: 20090305
  Receipt Date: 20090220
  Transmission Date: 20090719
  Serious: Yes (Hospitalization)
  Sender: FDA-Public Use
  Company Number: PHHY2009BR06102

PATIENT
  Age: 79 Year
  Sex: Female
  Weight: 120 kg

DRUGS (7)
  1. FORASEQ [Suspect]
     Indication: CHRONIC OBSTRUCTIVE PULMONARY DISEASE
     Dosage: 1 DF, BID
     Dates: end: 20081202
  2. BAMIFIX [Concomitant]
     Indication: CHRONIC OBSTRUCTIVE PULMONARY DISEASE
     Dosage: 1 CAPSULE/ DAY
     Route: 048
  3. HYDROCHLOROTHIAZIDE [Concomitant]
     Indication: HYPERTENSION
     Dosage: 1 TABLET / DAY
     Route: 048
  4. HYDROCHLOROTHIAZIDE [Concomitant]
     Indication: CARDIAC FAILURE CONGESTIVE
  5. ALDACTONE [Concomitant]
     Indication: HYPERTENSION
     Dosage: 1 TABLET / DAY
     Route: 048
     Dates: end: 20081202
  6. DILACORON [Concomitant]
     Indication: HYPERTENSION
     Dosage: 1 TABLET/DAY
     Route: 048
     Dates: end: 20081202
  7. RANITIDINE [Concomitant]
     Indication: GASTRIC DISORDER
     Dosage: 50 MG
     Route: 048

REACTIONS (7)
  - CONSTIPATION [None]
  - DYSPNOEA [None]
  - HERNIA OBSTRUCTIVE [None]
  - OXYGEN SATURATION ABNORMAL [None]
  - STRANGULATED HERNIA REPAIR [None]
  - TRACHEOSTOMY [None]
  - VOMITING [None]
